FAERS Safety Report 5329086-7 (Version None)
Quarter: 2007Q2

REPORT INFORMATION
  Report Type: 
  Country: None (occurrence: None)
  Receive Date: 20070220
  Receipt Date: 20061228
  Transmission Date: 20071010
  Serious: No
  Sender: FDA-Public Use
  Company Number: WAES 0612USA04179

PATIENT
  Age: 65 Year
  Sex: Female

DRUGS (6)
  1. JANUVIA [Suspect]
     Indication: DIABETES MELLITUS
     Dosage: 100MG DAILY, PO
     Route: 048
     Dates: start: 20061216
  2. PRANDIN [Suspect]
     Indication: DRUG USE FOR UNKNOWN INDICATION
  3. LIPITOR [Concomitant]
  4. TOPROL-XL [Concomitant]
  5. ZETIA [Concomitant]
  6. METFORMIN HCL [Concomitant]

REACTIONS (2)
  - ADVERSE EVENT [None]
  - RHINORRHOEA [None]
